FAERS Safety Report 19195780 (Version 1)
Quarter: 2021Q2

REPORT INFORMATION
  Report Type: Spontaneous
  Country: US (occurrence: US)
  Receive Date: 20210429
  Receipt Date: 20210429
  Transmission Date: 20210717
  Serious: Yes (Hospitalization, Other)
  Sender: FDA-Public Use
  Company Number: US-BAYER-2021-128610

PATIENT
  Age: 37 Year
  Sex: Female
  Weight: 63.5 kg

DRUGS (3)
  1. PFIZER?BIONTECH COVID?19 VACCINE [Suspect]
     Active Substance: TOZINAMERAN
     Indication: COVID-19 IMMUNISATION
     Dosage: 1500PM
     Route: 030
     Dates: start: 20210114
  2. PFIZER?BIONTECH COVID?19 VACCINE [Suspect]
     Active Substance: TOZINAMERAN
     Indication: COVID-19 IMMUNISATION
     Dosage: 1630PM
     Route: 030
     Dates: start: 20210204
  3. DROSPIRENONE + ETHINYLESTRADIOL [Suspect]
     Active Substance: DROSPIRENONE\ETHINYL ESTRADIOL
     Indication: CONTRACEPTION
     Dosage: 1 DF, QD
     Route: 048

REACTIONS (10)
  - Pain in extremity [Recovered/Resolved]
  - Vertebral artery dissection [Recovering/Resolving]
  - Pain [Recovered/Resolved]
  - Fatigue [Recovered/Resolved]
  - Vertigo [Recovering/Resolving]
  - Cerebellar stroke [Recovering/Resolving]
  - Thrombotic cerebral infarction [None]
  - Nausea [Recovering/Resolving]
  - Chills [Recovered/Resolved]
  - Asthenia [Recovering/Resolving]

NARRATIVE: CASE EVENT DATE: 20210114
